FAERS Safety Report 10167317 (Version 1)
Quarter: 2014Q2

REPORT INFORMATION
  Report Type: Spontaneous
  Country: US (occurrence: None)
  Receive Date: 20140509
  Receipt Date: 20140509
  Transmission Date: 20141212
  Serious: Yes (Other)
  Sender: FDA-Public Use
  Company Number: None

PATIENT
  Age: 56 Year
  Sex: Female
  Weight: 86.18 kg

DRUGS (1)
  1. METOPROLOL [Suspect]
     Indication: SUPRAVENTRICULAR EXTRASYSTOLES
     Route: 048
     Dates: start: 20140504, end: 20140507

REACTIONS (3)
  - Blood pressure increased [None]
  - Supraventricular extrasystoles [None]
  - Product substitution issue [None]
